FAERS Safety Report 5358610-3 (Version None)
Quarter: 2007Q2

REPORT INFORMATION
  Report Type: 
  Country: None (occurrence: None)
  Receive Date: 20070615
  Receipt Date: 20070606
  Transmission Date: 20071010
  Serious: Yes (Other)
  Sender: FDA-Public Use
  Company Number: DE-NOVOPROD-260771

PATIENT
  Sex: Female
  Weight: 57 kg

DRUGS (3)
  1. LEVEMIR [Suspect]
     Indication: DIABETES MELLITUS INSULIN-DEPENDENT
     Dosage: 34 U, QD
     Route: 058
     Dates: start: 20070214, end: 20070215
  2. PROTAPHANE [Concomitant]
     Dosage: 20 IU, QD
     Route: 058
  3. ACTRAPID [Concomitant]
     Dosage: 7.5 IU, QD
     Route: 058
     Dates: start: 20070214, end: 20070215

REACTIONS (2)
  - ABORTION SPONTANEOUS [None]
  - PREGNANCY [None]
